FAERS Safety Report 4350196-5 (Version None)
Quarter: 2004Q2

REPORT INFORMATION
  Report Type: 
  Country: None (occurrence: None)
  Receive Date: 20040426
  Receipt Date: 20040419
  Transmission Date: 20050107
  Serious: Yes (Hospitalization, Other)
  Sender: FDA-Public Use
  Company Number: 2004-04-0739

PATIENT
  Age: 35 Year
  Sex: Female
  Weight: 69 kg

DRUGS (10)
  1. REBETOL [Suspect]
     Indication: CHRONIC HEPATITIS
     Dosage: 800-400 MG*QD ORAL
     Route: 048
     Dates: start: 20030425, end: 20030507
  2. REBETOL [Suspect]
     Indication: CHRONIC HEPATITIS
     Dosage: 800-400 MG*QD ORAL
     Route: 048
     Dates: start: 20030508, end: 20030523
  3. REBETOL [Suspect]
     Indication: CHRONIC HEPATITIS
     Dosage: 800-400 MG*QD ORAL
     Route: 048
     Dates: start: 20030524, end: 20040405
  4. INTRON A [Suspect]
     Indication: HEPATITIS C
     Dosage: SEE IMAGE
     Route: 030
     Dates: start: 20030425, end: 20030523
  5. INTRON A [Suspect]
     Indication: HEPATITIS C
     Dosage: SEE IMAGE
     Route: 030
     Dates: start: 20030526, end: 20040405
  6. REBAMIPIDE [Concomitant]
  7. GASTER [Concomitant]
  8. OMEPRAZOLE [Concomitant]
  9. GASTROM [Concomitant]
  10. VOLTAREN [Concomitant]

REACTIONS (6)
  - ALOPECIA [None]
  - CEREBRAL INFARCTION [None]
  - HAEMOGLOBIN DECREASED [None]
  - PLATELET COUNT DECREASED [None]
  - PYREXIA [None]
  - WHITE BLOOD CELL COUNT DECREASED [None]
